FAERS Safety Report 8353608-5 (Version None)
Quarter: 2012Q2

REPORT INFORMATION
  Report Type: 
  Country: None (occurrence: None)
  Receive Date: 20120511
  Receipt Date: 20110728
  Transmission Date: 20120825
  Serious: Yes (Disabling)
  Sender: FDA-Public Use
  Company Number: US-GLAXOSMITHKLINE-A0938790A

PATIENT
  Age: 11 Year
  Sex: Female
  Weight: 38 kg

DRUGS (3)
  1. VITAMIN TAB [Concomitant]
  2. AFINITOR [Concomitant]
  3. TYKERB [Suspect]
     Indication: BRAIN NEOPLASM MALIGNANT
     Dosage: 1000MG PER DAY
     Route: 048
     Dates: start: 20110701

REACTIONS (1)
  - DIARRHOEA [None]
